FAERS Safety Report 5918406-8 (Version None)
Quarter: 2008Q4

REPORT INFORMATION
  Report Type: 
  Country: None (occurrence: None)
  Receive Date: 20081010
  Receipt Date: 20081006
  Transmission Date: 20090506
  Serious: Yes (Life-Threatening, Hospitalization)
  Sender: FDA-Public Use
  Company Number: 2008-180772-NL

PATIENT
  Age: 77 Year
  Sex: Male

DRUGS (5)
  1. MIRTAZAPINE [Suspect]
     Dosage: 15 MG QD ORAL
     Route: 048
     Dates: start: 20060101
  2. FLUINDIONE [Suspect]
     Dosage: 10 MG QD ORAL
     Route: 048
     Dates: start: 20060101, end: 20080605
  3. SERENOA REPENS [Concomitant]
  4. ENOXAPARIN SODIUM [Concomitant]
  5. AUGMENTIN [Concomitant]

REACTIONS (6)
  - BRONCHITIS [None]
  - HEMIPLEGIA [None]
  - INTERNATIONAL NORMALISED RATIO INCREASED [None]
  - INTRACRANIAL PRESSURE INCREASED [None]
  - SUBDURAL HAEMATOMA [None]
  - SUPERINFECTION [None]
